FAERS Safety Report 5474449-2 (Version None)
Quarter: 2007Q4

REPORT INFORMATION
  Report Type: 
  Country: None (occurrence: None)
  Receive Date: 20071002
  Receipt Date: 20070927
  Transmission Date: 20080405
  Serious: Yes (Other)
  Sender: FDA-Public Use
  Company Number: JP-AVENTIS-200712212JP

PATIENT
  Age: 67 Year
  Sex: Female

DRUGS (2)
  1. ALLEGRA [Suspect]
     Indication: URTICARIA
     Route: 048
     Dates: start: 20070704, end: 20070813
  2. HERBAL PREPARATION [Concomitant]
     Indication: URTICARIA
     Dates: start: 20070730, end: 20070813

REACTIONS (3)
  - CHEST DISCOMFORT [None]
  - HEPATIC FUNCTION ABNORMAL [None]
  - MALAISE [None]
